FAERS Safety Report 18938088 (Version 1)
Quarter: 2021Q1

REPORT INFORMATION
  Report Type: Spontaneous
  Country: BE (occurrence: BE)
  Receive Date: 20210224
  Receipt Date: 20210224
  Transmission Date: 20210420
  Serious: Yes (Other)
  Sender: FDA-Public Use
  Company Number: BE-ASTRAZENECA-2020SF72664

PATIENT
  Age: 63 Year
  Sex: Female
  Weight: 75.5 kg

DRUGS (11)
  1. OXYCONTIN [Suspect]
     Active Substance: OXYCODONE HYDROCHLORIDE
     Indication: PAIN
     Route: 048
     Dates: start: 20170507, end: 20170510
  2. PULMICORT TURBUHALER [Suspect]
     Active Substance: BUDESONIDE
     Indication: BRONCHITIS
     Route: 055
     Dates: start: 201604
  3. LODIXAL [Concomitant]
     Active Substance: VERAPAMIL HYDROCHLORIDE
     Indication: CARDIOVASCULAR DISORDER
     Dosage: TAKEN IN THE MORNING
  4. CETIRIZINE [Suspect]
     Active Substance: CETIRIZINE HYDROCHLORIDE
     Indication: SEASONAL ALLERGY
     Route: 048
     Dates: start: 201704
  5. BROMAZEPAM EG [Concomitant]
     Dosage: TAKEN BEFORE GOING TO BED
  6. PARACETAMOL [Concomitant]
     Active Substance: ACETAMINOPHEN
     Indication: PAIN
     Dosage: UP TO 3 PER DAY
  7. BELLOZAL [Suspect]
     Active Substance: BILASTINE
     Route: 048
     Dates: start: 2017
  8. ZALDIAR [Concomitant]
     Active Substance: ACETAMINOPHEN\TRAMADOL HYDROCHLORIDE
     Indication: PAIN
     Dosage: UP TO 3 PER DAY
  9. PANTOMED [Concomitant]
     Indication: GASTRIC DISORDER
     Dosage: TAKEN IN THE MORNING SOBERLY
  10. LIPANTHYLNANO [Concomitant]
     Active Substance: FENOFIBRATE
     Indication: HYPERCHOLESTEROLAEMIA
     Dosage: TAKEN IN THE EVENING
  11. ZOCOR [Suspect]
     Active Substance: SIMVASTATIN
     Indication: HYPERCHOLESTEROLAEMIA
     Dosage: TAKEN IN THE EVENING
     Route: 048

REACTIONS (15)
  - Arthralgia [Recovered/Resolved]
  - Vomiting [Recovered/Resolved]
  - Blood pressure decreased [Recovered/Resolved]
  - Swelling [Recovered/Resolved]
  - Dyspnoea [Recovered/Resolved]
  - Headache [Recovered/Resolved]
  - Loss of consciousness [Recovered/Resolved]
  - Blood pressure increased [Recovered/Resolved]
  - Gait disturbance [Unknown]
  - Dizziness [Unknown]
  - Hypertension [Unknown]
  - Nausea [Unknown]
  - Myalgia [Recovered/Resolved]
  - Arrhythmia [Recovered/Resolved]
  - Rash erythematous [Recovered/Resolved]
